FAERS Safety Report 21063430 (Version 3)
Quarter: 2022Q4

REPORT INFORMATION
  Report Type: Report from Study
  Country: US (occurrence: US)
  Receive Date: 20220711
  Receipt Date: 20221013
  Transmission Date: 20230112
  Serious: No
  Sender: FDA-Public Use
  Company Number: US-NOVARTISTESTPH-NVSC2022US156906

PATIENT
  Sex: Female

DRUGS (1)
  1. KISQALI [Suspect]
     Active Substance: RIBOCICLIB
     Indication: Product used for unknown indication
     Dosage: 600 MG, QD (21 DAYS ON, 7 DAYS OFF. 28 DAY CYCLE)
     Route: 048
     Dates: start: 20220607

REACTIONS (2)
  - Nervousness [Unknown]
  - Vision blurred [Unknown]
